FAERS Safety Report 7332873-7 (Version None)
Quarter: 2011Q1

REPORT INFORMATION
  Report Type: 
  Country: None (occurrence: None)
  Receive Date: 20110304
  Receipt Date: 20110302
  Transmission Date: 20110831
  Serious: Yes (Other)
  Sender: FDA-Public Use
  Company Number: BR-PFIZER INC-2010181618

PATIENT
  Age: 54 Year
  Sex: Female
  Weight: 82 kg

DRUGS (16)
  1. CIPROFLOXACIN HYDROCHLORIDE [Concomitant]
     Dosage: UNK
  2. ATENOLOL [Concomitant]
     Indication: HYPERTENSION
     Dosage: 100 MG, 1X/DAY
     Dates: start: 20000101
  3. NEURONTIN [Suspect]
     Indication: ISCHAEMIC NEUROPATHY
  4. LYRICA [Suspect]
     Indication: COAGULOPATHY
  5. NEURONTIN [Suspect]
     Indication: PERIPHERAL ISCHAEMIA
  6. AMLODIPINE BESILATE [Concomitant]
     Indication: HYPERTENSION
     Dosage: 5 MG, 1X/DAY
     Dates: start: 20070101
  7. AAS [Concomitant]
     Indication: CARDIOVASCULAR DISORDER
     Dosage: 100 MG, 2X/DAY
     Dates: start: 20000101
  8. WARFARIN [Concomitant]
     Dosage: 5 MG, 1X/DAY
  9. NEURONTIN [Suspect]
     Indication: THROMBOSIS
     Dosage: UNK
     Route: 048
     Dates: start: 20070101, end: 20110111
  10. LYRICA [Suspect]
     Indication: THROMBOSIS
     Dosage: UNK
     Route: 048
     Dates: start: 20060101, end: 20110115
  11. TEGRETOL [Concomitant]
     Dosage: UNK
  12. ATENOLOL [Concomitant]
     Indication: ARRHYTHMIA
  13. CILOSTAZOL [Concomitant]
     Indication: CARDIOVASCULAR DISORDER
     Dosage: 100 MG, 2X/DAY
     Dates: start: 20070101
  14. LYRICA [Suspect]
     Indication: PERIPHERAL ISCHAEMIA
  15. LYRICA [Suspect]
     Indication: ISCHAEMIC NEUROPATHY
  16. LISADOR [Concomitant]
     Indication: PAIN
     Dosage: UNK, 3 TABLETS PER DAY

REACTIONS (7)
  - ARRHYTHMIA [None]
  - CARDIAC FAILURE [None]
  - HYPERHIDROSIS [None]
  - NAUSEA [None]
  - TINNITUS [None]
  - HEART RATE INCREASED [None]
  - HYPERTENSION [None]
